FAERS Safety Report 4359260-8 (Version None)
Quarter: 2004Q2

REPORT INFORMATION
  Report Type: 
  Country: None (occurrence: None)
  Receive Date: 20040512
  Receipt Date: 20040423
  Transmission Date: 20050107
  Serious: Yes (Hospitalization, Disabling, Other)
  Sender: FDA-Public Use
  Company Number: US_0404102571

PATIENT
  Age: 42 Year
  Sex: Male
  Weight: 127 kg

DRUGS (2)
  1. HUMALOG [Suspect]
     Dates: start: 19940101
  2. HUMULIN N [Suspect]
     Dates: start: 19940101, end: 20040401

REACTIONS (9)
  - ATRIOVENTRICULAR BLOCK [None]
  - EXERCISE LACK OF [None]
  - HEPATIC CIRRHOSIS [None]
  - HYPERSOMNIA [None]
  - MUSCLE CRAMP [None]
  - PANCREATITIS CHRONIC [None]
  - PULMONARY EMBOLISM [None]
  - SYSTEMIC LUPUS ERYTHEMATOSUS [None]
  - THROMBOSIS [None]
